FAERS Safety Report 8379639-7 (Version None)
Quarter: 2012Q2

REPORT INFORMATION
  Report Type: 
  Country: None (occurrence: None)
  Receive Date: 20120523
  Receipt Date: 20120518
  Transmission Date: 20120825
  Serious: Yes (Other)
  Sender: FDA-Public Use
  Company Number: AU-JNJFOC-20120515631

PATIENT
  Age: 35 Year
  Sex: Female

DRUGS (2)
  1. VITAMIN [Concomitant]
     Route: 065
  2. NICOTINE [Suspect]
     Indication: SMOKING CESSATION THERAPY
     Route: 048
     Dates: start: 20120516, end: 20120518

REACTIONS (3)
  - DEPRESSION [None]
  - CRYING [None]
  - DIZZINESS [None]
